FAERS Safety Report 15637463 (Version 1)
Quarter: 2018Q4

REPORT INFORMATION
  Report Type: Spontaneous
  Country: US (occurrence: US)
  Receive Date: 20181120
  Receipt Date: 20181120
  Transmission Date: 20190205
  Serious: No
  Sender: FDA-Public Use
  Company Number: US-JNJFOC-20180533213

PATIENT
  Sex: Female

DRUGS (11)
  1. VITAMIN D3 [Concomitant]
     Active Substance: CHOLECALCIFEROL
  2. PREDNISONE. [Concomitant]
     Active Substance: PREDNISONE
  3. CLOBETASOL [Concomitant]
     Active Substance: CLOBETASOL
  4. LASIX [Concomitant]
     Active Substance: FUROSEMIDE
  5. URSODIOL. [Concomitant]
     Active Substance: URSODIOL
  6. IMBRUVICA [Suspect]
     Active Substance: IBRUTINIB
     Indication: PRODUCT USED FOR UNKNOWN INDICATION
     Route: 048
     Dates: start: 201803, end: 2018
  7. ACYCLOVIR. [Concomitant]
     Active Substance: ACYCLOVIR
  8. NORCO [Concomitant]
     Active Substance: ACETAMINOPHEN\HYDROCODONE BITARTRATE
  9. CLONAZEPAM. [Concomitant]
     Active Substance: CLONAZEPAM
  10. PROLIA [Concomitant]
     Active Substance: DENOSUMAB
  11. LOTEMAX [Concomitant]
     Active Substance: LOTEPREDNOL ETABONATE

REACTIONS (1)
  - Gastroenteritis viral [Unknown]

NARRATIVE: CASE EVENT DATE: 2018
